FAERS Safety Report 19115858 (Version 1)
Quarter: 2021Q2

REPORT INFORMATION
  Report Type: Report from Study
  Country: FR (occurrence: FR)
  Receive Date: 20210409
  Receipt Date: 20210409
  Transmission Date: 20210717
  Serious: Yes (Hospitalization)
  Sender: FDA-Public Use
  Company Number: FR-TEVA-2021-FR-1898818

PATIENT
  Age: 69 Year
  Sex: Male
  Weight: 87 kg

DRUGS (5)
  1. BICALUTAMIDE. [Suspect]
     Active Substance: BICALUTAMIDE
     Indication: PROSTATE CANCER
     Dosage: 50 MG, QCY
     Route: 048
     Dates: start: 20200713, end: 20200713
  2. ETHER. [Concomitant]
     Active Substance: ETHER
     Dosage: THERAPY START DATE AND END DATE : ASKED BUT UNKNOWN
  3. BICALUTAMIDE. [Suspect]
     Active Substance: BICALUTAMIDE
     Dosage: 1050 MG, QCY
     Route: 048
     Dates: start: 20200802, end: 20200802
  4. LEUPRORELIN [Suspect]
     Active Substance: LEUPROLIDE ACETATE
     Indication: PROSTATE CANCER
     Dosage: 5 MG, QCY
     Route: 058
     Dates: start: 20200727, end: 20200727
  5. CABAZITAXEL [Suspect]
     Active Substance: CABAZITAXEL
     Indication: PROSTATE CANCER
     Dosage: 40 MG, QCY
     Route: 042
     Dates: start: 20200807, end: 20200807

REACTIONS (1)
  - Acute kidney injury [Recovered/Resolved with Sequelae]

NARRATIVE: CASE EVENT DATE: 20200818
